FAERS Safety Report 9283747 (Version 1)
Quarter: 2013Q2

REPORT INFORMATION
  Report Type: Spontaneous
  Country: FR (occurrence: FR)
  Receive Date: 20130510
  Receipt Date: 20130510
  Transmission Date: 20140414
  Serious: Yes (Other)
  Sender: FDA-Public Use
  Company Number: PHHY2013FR044913

PATIENT
  Age: 65 Year
  Sex: Female

DRUGS (1)
  1. HEPARIN [Suspect]
     Route: 042

REACTIONS (8)
  - Ischaemic cerebral infarction [Recovered/Resolved]
  - Cerebral infarction [Recovered/Resolved]
  - Aphasia [Recovered/Resolved]
  - Hemiparesis [Recovered/Resolved]
  - Carotid artery stenosis [Recovered/Resolved]
  - Hemiplegia [Recovered/Resolved]
  - Cerebral artery embolism [Recovered/Resolved]
  - Heparin-induced thrombocytopenia [Recovered/Resolved]
